FAERS Safety Report 18703103 (Version 5)
Quarter: 2021Q1

REPORT INFORMATION
  Report Type: Spontaneous
  Country: BR (occurrence: BR)
  Receive Date: 20210105
  Receipt Date: 20210222
  Transmission Date: 20210419
  Serious: Yes (Other)
  Sender: FDA-Public Use
  Company Number: NVSC2020BR281692

PATIENT
  Age: 1 Year
  Sex: Female

DRUGS (5)
  1. ZOLGENSMA [Suspect]
     Active Substance: ONASEMNOGENE ABEPARVOVEC-XIOI
     Dosage: UNK
     Route: 042
  2. PREDNISOLONA [Concomitant]
     Active Substance: PREDNISOLONE
     Indication: PROPHYLAXIS
     Dosage: 1 MG/KG, QD (GESTROTOMY)
     Route: 065
     Dates: start: 20200927
  3. ZOLGENSMA [Suspect]
     Active Substance: ONASEMNOGENE ABEPARVOVEC-XIOI
     Dosage: 63.5 ML, ONCE/SINGLE
     Route: 042
     Dates: start: 20201013
  4. ZOLGENSMA [Suspect]
     Active Substance: ONASEMNOGENE ABEPARVOVEC-XIOI
     Indication: SPINAL MUSCULAR ATROPHY
     Dosage: 63.6 ML, ONCE/SINGLE
     Route: 042
     Dates: start: 20200928
  5. PREDNISOLONE ACETATE. [Concomitant]
     Active Substance: PREDNISOLONE ACETATE
     Indication: PRODUCT USED FOR UNKNOWN INDICATION
     Dosage: 0.5 MG/KG, QD
     Route: 065

REACTIONS (11)
  - Blood bilirubin unconjugated decreased [Unknown]
  - Hair growth abnormal [Recovered/Resolved]
  - Aspartate aminotransferase increased [Unknown]
  - Hypertrichosis [Recovered/Resolved]
  - Adrenal suppression [Unknown]
  - Hepatic enzyme increased [Unknown]
  - Lymphocyte morphology abnormal [Unknown]
  - Gamma-glutamyltransferase increased [Unknown]
  - Alanine aminotransferase increased [Unknown]
  - Blood creatinine decreased [Unknown]
  - Transaminases increased [Recovered/Resolved]

NARRATIVE: CASE EVENT DATE: 20201012
